FAERS Safety Report 5121742-9 (Version None)
Quarter: 2006Q4

REPORT INFORMATION
  Report Type: 
  Country: None (occurrence: None)
  Receive Date: 20061006
  Receipt Date: 20060901
  Transmission Date: 20070319
  Serious: Yes (Other)
  Sender: FDA-Public Use
  Company Number: PHBS2006JP13535

PATIENT
  Age: 65 Year
  Sex: Female

DRUGS (17)
  1. NEORAL [Suspect]
     Indication: MIXED CONNECTIVE TISSUE DISEASE
     Dosage: 100 MG/DAY
     Route: 048
     Dates: start: 20040601, end: 20041101
  2. NEORAL [Suspect]
     Dosage: 150 MG/DAY
     Route: 048
     Dates: start: 20041101, end: 20050601
  3. NEORAL [Suspect]
     Dosage: 50 MG/DAY
     Route: 048
     Dates: start: 20050801, end: 20051201
  4. NEORAL [Suspect]
     Dosage: 100 MG/DAY
     Route: 048
     Dates: start: 20051201
  5. MEDROL [Concomitant]
     Dosage: 4 MG/D
     Route: 048
  6. PARIET [Concomitant]
     Dosage: 10 MG/D
     Route: 048
  7. ROCALTROL [Concomitant]
     Dosage: 0.25 UG/D
     Route: 048
  8. ALLOPURINOL [Concomitant]
     Dosage: 100 MG/D
     Route: 048
  9. MUCOSTA [Concomitant]
     Dosage: 200 MG/D
     Route: 048
  10. BENET [Concomitant]
     Dosage: 2.5 MG/D
     Route: 048
  11. PAXIL [Concomitant]
     Dosage: 25 MG/D
     Route: 048
  12. KREMEZIN [Concomitant]
     Dosage: 1 G/D
     Route: 048
  13. CHOLEBRINE [Concomitant]
     Dosage: 3.62 G/D
     Route: 048
  14. TENORMIN [Concomitant]
     Dosage: 25 MG/D
     Route: 048
  15. ATELEC [Concomitant]
     Dosage: 20 MG/D
     Route: 048
  16. FRANDOL [Concomitant]
     Dosage: 40 MG/D
     Route: 048
  17. NITRODERM [Concomitant]
     Route: 062

REACTIONS (6)
  - DYSURIA [None]
  - NAUSEA [None]
  - PHOTOPSIA [None]
  - RENAL IMPAIRMENT [None]
  - VISUAL ACUITY REDUCED [None]
  - VISUAL DISTURBANCE [None]
